APPROVED DRUG PRODUCT: FAMOTIDINE PRESERVATIVE FREE IN PLASTIC CONTAINER
Active Ingredient: FAMOTIDINE
Strength: 0.4MG/ML
Dosage Form/Route: INJECTABLE;INJECTION
Application: A075591 | Product #001
Applicant: BAXTER HEALTHCARE CORP
Approved: May 10, 2001 | RLD: No | RS: Yes | Type: RX